FAERS Safety Report 14280904 (Version 5)
Quarter: 2018Q1

REPORT INFORMATION
  Report Type: Spontaneous
  Country: GB (occurrence: GB)
  Receive Date: 20171213
  Receipt Date: 20180323
  Transmission Date: 20180508
  Serious: Yes (Life-Threatening, Hospitalization, Other)
  Sender: FDA-Public Use
  Company Number: GB-AUROBINDO-AUR-APL-2017-45231

PATIENT
  Age: 16 Year
  Sex: Male

DRUGS (43)
  1. TEMAZEPAM. [Concomitant]
     Active Substance: TEMAZEPAM
     Dosage: ()
  2. GENTAMICIN. [Concomitant]
     Active Substance: GENTAMICIN
     Indication: PRODUCT USED FOR UNKNOWN INDICATION
     Route: 065
  3. RIFAMPICIN [Concomitant]
     Active Substance: RIFAMPIN
     Dosage: ()
     Route: 065
  4. CEFTRIAXONE. [Concomitant]
     Active Substance: CEFTRIAXONE
     Dosage: ()
  5. RANITIDINE. [Suspect]
     Active Substance: RANITIDINE
     Dosage: ()
     Route: 065
  6. VANCOMYCIN [Concomitant]
     Active Substance: VANCOMYCIN
     Dosage: STARTED IN THE FIRST 2 WEEKS OF ADMISSION ()
  7. GENTAMICIN. [Concomitant]
     Active Substance: GENTAMICIN
     Dosage: STARTED IN THE FIRST 2 WEEKS OF ADMISSION ()
  8. MEROPENEM. [Concomitant]
     Active Substance: MEROPENEM
     Indication: PRODUCT USED FOR UNKNOWN INDICATION
     Route: 065
  9. MEROPENEM. [Concomitant]
     Active Substance: MEROPENEM
     Dosage: STARTED IN THE FIRST 2 WEEKS OF ADMISSION ()
  10. RANITIDINE. [Suspect]
     Active Substance: RANITIDINE
     Dosage: STARTED 3 WEEKS BEFORE THE ONSET OF ERUPTION ()
  11. SPIRONOLACTONE. [Concomitant]
     Active Substance: SPIRONOLACTONE
     Indication: PRODUCT USED FOR UNKNOWN INDICATION
     Dosage: UNK
     Route: 065
  12. FUROSEMIDE. [Concomitant]
     Active Substance: FUROSEMIDE
     Dosage: ()
  13. SPIRONOLACTONE. [Concomitant]
     Active Substance: SPIRONOLACTONE
     Dosage: STARTED 3 WEEKS BEFORE THE ONSET OF ERUPTION ()
  14. TEMAZEPAM. [Concomitant]
     Active Substance: TEMAZEPAM
     Dosage: ()
  15. IBUPROFEN. [Concomitant]
     Active Substance: IBUPROFEN
     Indication: PRODUCT USED FOR UNKNOWN INDICATION
     Route: 065
  16. RIFAMPICIN [Concomitant]
     Active Substance: RIFAMPIN
     Dosage: ()
  17. ENOXAPARIN [Concomitant]
     Active Substance: ENOXAPARIN
     Indication: PRODUCT USED FOR UNKNOWN INDICATION
     Dosage: STARTED 3 WEEKS BEFORE THE ONSET OF ERUPTION ()
  18. FUROSEMIDE. [Concomitant]
     Active Substance: FUROSEMIDE
     Dosage: STARTED 3 WEEKS BEFORE THE ONSET OF ERUPTION ()
  19. IBUPROFEN. [Concomitant]
     Active Substance: IBUPROFEN
     Dosage: ()
  20. RIFAMPICIN [Concomitant]
     Active Substance: RIFAMPIN
     Dosage: STARTED IN THE FIRST 2 WEEKS OF ADMISSION ()
  21. MEROPENEM. [Concomitant]
     Active Substance: MEROPENEM
     Dosage: ()
  22. PARACETAMOL [Concomitant]
     Active Substance: ACETAMINOPHEN
     Indication: PRODUCT USED FOR UNKNOWN INDICATION
     Route: 065
  23. CEFTRIAXONE. [Concomitant]
     Active Substance: CEFTRIAXONE
     Indication: PRODUCT USED FOR UNKNOWN INDICATION
     Route: 065
  24. SPIRONOLACTONE. [Concomitant]
     Active Substance: SPIRONOLACTONE
     Dosage: ()
  25. VANCOMYCIN [Concomitant]
     Active Substance: VANCOMYCIN
     Indication: PRODUCT USED FOR UNKNOWN INDICATION
     Route: 065
  26. IBUPROFEN. [Concomitant]
     Active Substance: IBUPROFEN
     Dosage: STARTED 3 WEEKS BEFORE THE ONSET OF ERUPTION ()
  27. PARACETAMOL [Concomitant]
     Active Substance: ACETAMINOPHEN
     Dosage: ()
  28. ENOXAPARIN [Concomitant]
     Active Substance: ENOXAPARIN
     Dosage: ()
  29. TEMAZEPAM. [Concomitant]
     Active Substance: TEMAZEPAM
     Indication: PRODUCT USED FOR UNKNOWN INDICATION
     Dosage: UNK
     Route: 065
  30. FUROSEMIDE. [Concomitant]
     Active Substance: FUROSEMIDE
     Dosage: ()
  31. GENTAMICIN. [Concomitant]
     Active Substance: GENTAMICIN
     Dosage: ()
  32. MEROPENEM. [Concomitant]
     Active Substance: MEROPENEM
     Dosage: ()
  33. PARACETAMOL [Concomitant]
     Active Substance: ACETAMINOPHEN
     Dosage: ()
  34. CEFTRIAXONE. [Concomitant]
     Active Substance: CEFTRIAXONE
     Dosage: ()
  35. RANITIDINE. [Suspect]
     Active Substance: RANITIDINE
     Indication: PRODUCT USED FOR UNKNOWN INDICATION
     Dosage: UNK
     Route: 065
  36. TEMAZEPAM. [Concomitant]
     Active Substance: TEMAZEPAM
     Dosage: STARTED 3 WEEKS BEFORE THE ONSET OF ERUPTION ()
  37. VANCOMYCIN [Concomitant]
     Active Substance: VANCOMYCIN
     Dosage: ()
  38. VANCOMYCIN [Concomitant]
     Active Substance: VANCOMYCIN
     Dosage: ()
  39. FUROSEMIDE. [Concomitant]
     Active Substance: FUROSEMIDE
     Indication: PRODUCT USED FOR UNKNOWN INDICATION
     Route: 065
  40. IBUPROFEN. [Concomitant]
     Active Substance: IBUPROFEN
     Dosage: ()
  41. RIFAMPICIN [Concomitant]
     Active Substance: RIFAMPIN
     Indication: PRODUCT USED FOR UNKNOWN INDICATION
     Dosage: UNK
     Route: 065
  42. PARACETAMOL [Concomitant]
     Active Substance: ACETAMINOPHEN
     Dosage: STARTED 3 WEEKS BEFORE THE ONSET OF ERUPTION ()
  43. CEFTRIAXONE. [Concomitant]
     Active Substance: CEFTRIAXONE
     Dosage: STARTED IN THE FIRST 2 WEEKS OF ADMISSION ()

REACTIONS (1)
  - Drug reaction with eosinophilia and systemic symptoms [Unknown]
